FAERS Safety Report 20208608 (Version 2)
Quarter: 2022Q3

REPORT INFORMATION
  Report Type: Spontaneous
  Country: CO (occurrence: CO)
  Receive Date: 20211220
  Receipt Date: 20220928
  Transmission Date: 20221026
  Serious: No
  Sender: FDA-Public Use
  Company Number: CO-PFIZER INC-2020463399

PATIENT
  Age: 14 Year
  Sex: Male

DRUGS (2)
  1. GENOTROPIN [Suspect]
     Active Substance: SOMATROPIN
     Dosage: 1.8 MG, DAILY
     Route: 058
     Dates: start: 202006, end: 202010
  2. GENOTROPIN [Suspect]
     Active Substance: SOMATROPIN
     Dosage: 1.8 MG, DAILY
     Route: 058
     Dates: start: 2020

REACTIONS (5)
  - Drug dose omission by device [Recovered/Resolved]
  - Device occlusion [Recovered/Resolved]
  - Device failure [Recovered/Resolved]
  - Device use issue [Unknown]
  - Expired device used [Unknown]

NARRATIVE: CASE EVENT DATE: 20201001
